FAERS Safety Report 8063666-3 (Version None)
Quarter: 2011Q4

REPORT INFORMATION
  Report Type: 
  Country: None (occurrence: None)
  Receive Date: 20111220
  Receipt Date: 20111019
  Transmission Date: 20120403
  Serious: Yes (Other)
  Sender: FDA-Public Use
  Company Number: US016918

PATIENT
  Age: 50 Year
  Sex: Female

DRUGS (3)
  1. ACTIQ [Suspect]
     Indication: SYSTEMIC LUPUS ERYTHEMATOSUS
     Dosage: 1200 MCG (400 MCG, 3 IN 1 D), BU
     Route: 002
     Dates: start: 20031101
  2. FENUGREEK [Concomitant]
  3. PRENATAL VITAMIN (TABLETS) [Concomitant]

REACTIONS (2)
  - MATERNAL EXPOSURE DURING PREGNANCY [None]
  - TOOTH DISORDER [None]
